FAERS Safety Report 9674515 (Version 4)
Quarter: 2014Q1

REPORT INFORMATION
  Report Type: Spontaneous
  Country: IE (occurrence: IE)
  Receive Date: 20131107
  Receipt Date: 20140129
  Transmission Date: 20141002
  Serious: Yes (Death, Hospitalization)
  Sender: FDA-Public Use
  Company Number: IE-BRISTOL-MYERS SQUIBB COMPANY-19506757

PATIENT
  Age: 6 Decade
  Sex: Male

DRUGS (8)
  1. YERVOY [Suspect]
     Indication: METASTATIC MALIGNANT MELANOMA
     Route: 042
     Dates: start: 20130925
  2. INNOHEP [Concomitant]
     Dosage: TINZAPARIN SODIUM 10,000 UNITS/MI),
  3. LACTULOSE [Concomitant]
  4. MOVICOL [Concomitant]
  5. LYRICA [Concomitant]
  6. TAMSULOSIN [Concomitant]
  7. LANSOPRAZOLE [Concomitant]
  8. MYCOSTATIN [Concomitant]

REACTIONS (6)
  - Malignant neoplasm progression [Fatal]
  - Oesophagitis [Unknown]
  - Dysphagia [Unknown]
  - Mucosal inflammation [Unknown]
  - Fungal infection [Unknown]
  - Off label use [Unknown]
